FAERS Safety Report 11336235 (Version 1)
Quarter: 2015Q3

REPORT INFORMATION
  Report Type: Other
  Country: JP (occurrence: JP)
  Receive Date: 20150804
  Receipt Date: 20150804
  Transmission Date: 20151125
  Serious: Yes (Life-Threatening, Other)
  Sender: FDA-Public Use
  Company Number: JP-TAKEDA-2015TEU006440

PATIENT
  Age: 71 Year
  Sex: Male
  Weight: 57 kg

DRUGS (9)
  1. TACHOSIL [Suspect]
     Active Substance: FIBRINOGEN HUMAN\THROMBIN HUMAN
     Indication: TISSUE SEALING
     Dosage: UNK, QD
     Route: 050
     Dates: start: 20150717
  2. GASTER [Concomitant]
     Active Substance: FAMOTIDINE
     Dosage: UNK
     Dates: start: 20150717, end: 20150721
  3. BOLHEAL [Suspect]
     Active Substance: FACTOR XIII CONCENTRATE (HUMAN)\FIBRINOGEN HUMAN\THROMBIN HUMAN
     Indication: TISSUE SEALING
     Dosage: 5 ML, QD
     Route: 050
     Dates: start: 20150717, end: 20150717
  4. FENTANYL. [Concomitant]
     Active Substance: FENTANYL
     Dosage: UNK
     Dates: start: 20150717, end: 20150717
  5. BRIDION [Concomitant]
     Active Substance: SUGAMMADEX
     Dosage: UNK
     Route: 042
     Dates: start: 20150717, end: 20150717
  6. SONAZOID FOR INJECTION [Concomitant]
     Dosage: UNK
     Dates: start: 20150717, end: 20150717
  7. CEFMETAZOLE SODIUM [Concomitant]
     Active Substance: CEFMETAZOLE SODIUM
     Dosage: UNK
     Route: 042
     Dates: start: 20150717, end: 20150720
  8. ANAPEINE [Concomitant]
     Active Substance: ROPIVACAINE HYDROCHLORIDE
     Dosage: UNK
     Dates: start: 20150717, end: 20150717
  9. SOLDEM 3A [Concomitant]
     Active Substance: CARBOHYDRATES\POTASSIUM CHLORIDE\SODIUM CHLORIDE\SODIUM LACTATE
     Dosage: UNK
     Dates: start: 20150717, end: 20150722

REACTIONS (1)
  - Anaphylactic shock [Recovered/Resolved]

NARRATIVE: CASE EVENT DATE: 20150717
